FAERS Safety Report 13582498 (Version 1)
Quarter: 2017Q2

REPORT INFORMATION
  Report Type: Spontaneous
  Country: US (occurrence: US)
  Receive Date: 20170525
  Receipt Date: 20170525
  Transmission Date: 20170830
  Serious: No
  Sender: FDA-Public Use
  Company Number: US-ELI_LILLY_AND_COMPANY-US201705009040

PATIENT
  Sex: Female

DRUGS (3)
  1. HUMALOG [Suspect]
     Active Substance: INSULIN LISPRO
     Indication: DIABETES MELLITUS
     Dosage: 26 U, QID, ON A SLIDING SCALE
     Route: 058
     Dates: start: 2013
  2. HUMALOG [Suspect]
     Active Substance: INSULIN LISPRO
     Dosage: 26 U, QID, ON A SLIDING SCALE
     Route: 058
     Dates: start: 2013
  3. TOUJEO [Concomitant]
     Active Substance: INSULIN GLARGINE
     Indication: DIABETES MELLITUS
     Dosage: UNK, DAILY
     Route: 065

REACTIONS (3)
  - Dizziness [Recovered/Resolved]
  - Injection site pain [Recovered/Resolved]
  - Oral mucosal blistering [Unknown]
